FAERS Safety Report 6160783-X (Version None)
Quarter: 2009Q2

REPORT INFORMATION
  Report Type: 
  Country: None (occurrence: None)
  Receive Date: 20090420
  Receipt Date: 20090414
  Transmission Date: 20091009
  Serious: Yes (Other)
  Sender: FDA-Public Use
  Company Number: PHHY2009BR13493

PATIENT
  Age: 60 Year
  Sex: Male

DRUGS (3)
  1. RASILEZ [Suspect]
     Indication: PROTEINURIA
     Dosage: 150 MG DAILY
     Route: 048
     Dates: start: 20090408, end: 20090413
  2. RASILEZ [Suspect]
     Indication: HYPERTENSION
  3. APROVEL [Concomitant]

REACTIONS (5)
  - ANGIOEDEMA [None]
  - ARTHRALGIA [None]
  - LIP OEDEMA [None]
  - SKIN LESION [None]
  - URTICARIA [None]
